FAERS Safety Report 4488169-4 (Version None)
Quarter: 2004Q4

REPORT INFORMATION
  Report Type: 
  Country: None (occurrence: None)
  Receive Date: 20041025
  Receipt Date: 20041021
  Transmission Date: 20050328
  Serious: Yes (Death)
  Sender: FDA-Public Use
  Company Number: 2004216855JP

PATIENT
  Age: 75 Year
  Sex: Male

DRUGS (3)
  1. CABERGOLINE [Suspect]
     Indication: PARKINSON'S DISEASE
     Dosage: 1 MG/DAY, ORAL  : 2 MG/DAY, ORAL  : 3 MG/DAY, ORAL
     Route: 048
     Dates: start: 20030926
  2. CABERGOLINE [Suspect]
     Indication: PARKINSON'S DISEASE
     Dosage: 1 MG/DAY, ORAL  : 2 MG/DAY, ORAL  : 3 MG/DAY, ORAL
     Route: 048
     Dates: start: 20031024
  3. CABERGOLINE [Suspect]
     Indication: PARKINSON'S DISEASE
     Dosage: 1 MG/DAY, ORAL  : 2 MG/DAY, ORAL  : 3 MG/DAY, ORAL
     Route: 048
     Dates: start: 20031121

REACTIONS (1)
  - DROWNING [None]
